FAERS Safety Report 6222991-9 (Version None)
Quarter: 2009Q2

REPORT INFORMATION
  Report Type: 
  Country: None (occurrence: None)
  Receive Date: 20090611
  Receipt Date: 20090604
  Transmission Date: 20091009
  Serious: Yes (Hospitalization, Other)
  Sender: FDA-Public Use
  Company Number: BR-ABBOTT-09P-020-0578220-00

PATIENT
  Weight: 52.8 kg

DRUGS (4)
  1. KALETRA [Suspect]
     Indication: ACQUIRED IMMUNODEFICIENCY SYNDROME
     Dosage: 600/150 MG
     Route: 048
     Dates: start: 20090507
  2. RIFAMPICIN/ISONIAZID [Concomitant]
     Indication: TUBERCULOSIS
     Dosage: 600/400 TOTAL DAILY 300/200 MG  2X/DAY
     Route: 048
     Dates: start: 20090409
  3. LAMIVUDINE AND ZIDOVUDINE [Concomitant]
     Indication: ACQUIRED IMMUNODEFICIENCY SYNDROME
     Dosage: 600/300 MG TOTAL DAILY
     Route: 048
     Dates: start: 20090507
  4. PYRAZINAMIDE [Concomitant]
     Indication: TUBERCULOSIS
     Route: 048
     Dates: start: 20090409

REACTIONS (1)
  - CEREBRAL TOXOPLASMOSIS [None]
